FAERS Safety Report 9394400 (Version 2)
Quarter: 2014Q2

REPORT INFORMATION
  Report Type: Spontaneous
  Country: CA (occurrence: CA)
  Receive Date: 20130711
  Receipt Date: 20140506
  Transmission Date: 20141212
  Serious: Yes (Hospitalization)
  Sender: FDA-Public Use
  Company Number: CA-AMGEN-CANSP2013048206

PATIENT
  Age: 90 Year
  Sex: Female

DRUGS (1)
  1. PROLIA [Suspect]
     Indication: OSTEOPOROSIS POSTMENOPAUSAL
     Dosage: 60 MG, Q6MO
     Route: 058
     Dates: start: 20130528

REACTIONS (8)
  - Fall [Recovering/Resolving]
  - Dehydration [Recovering/Resolving]
  - Faecal incontinence [Recovering/Resolving]
  - Asthenia [Recovering/Resolving]
  - Dysarthria [Not Recovered/Not Resolved]
  - Mobility decreased [Not Recovered/Not Resolved]
  - Disorientation [Not Recovered/Not Resolved]
  - Pain [Not Recovered/Not Resolved]
